FAERS Safety Report 7313942-4 (Version None)
Quarter: 2011Q1

REPORT INFORMATION
  Report Type: 
  Country: None (occurrence: None)
  Receive Date: 20110225
  Receipt Date: 20110212
  Transmission Date: 20110831
  Serious: Yes (Death)
  Sender: FDA-Public Use
  Company Number: US-ACTELION-A-US2011-45069

PATIENT

DRUGS (1)
  1. VENTAVIS [Suspect]
     Dosage: 5 UG, UNK
     Route: 055

REACTIONS (1)
  - DEATH [None]
